FAERS Safety Report 8004528-7 (Version None)
Quarter: 2011Q4

REPORT INFORMATION
  Report Type: 
  Country: None (occurrence: None)
  Receive Date: 20111223
  Receipt Date: 20111214
  Transmission Date: 20120403
  Serious: Yes (Hospitalization, Other)
  Sender: FDA-Public Use
  Company Number: JP-GENZYME-THYM-1003004

PATIENT
  Sex: Male
  Weight: 76 kg

DRUGS (19)
  1. BUSULFAN [Concomitant]
     Indication: BONE MARROW CONDITIONING REGIMEN
     Dosage: UNK
     Route: 065
     Dates: start: 20100825, end: 20100827
  2. VANCOMYCIN HCL [Concomitant]
     Indication: INFECTION PROPHYLAXIS
     Dosage: UNK
     Route: 065
     Dates: start: 20110120, end: 20110127
  3. METHYLPREDNISOLONE SODIUM SUCCINATE [Concomitant]
     Indication: PREMEDICATION
  4. SULFAMETHOXAZOLE W [Concomitant]
     Indication: INFECTION PROPHYLAXIS
     Dosage: UNK
     Dates: start: 20100825
  5. ETOPOSIDE [Concomitant]
     Indication: BONE MARROW CONDITIONING REGIMEN
     Dosage: UNK
     Route: 065
     Dates: start: 20100823, end: 20100824
  6. METHYLPREDNISOLONE SODIUM SUCCINATE [Concomitant]
     Indication: BONE MARROW CONDITIONING REGIMEN
     Dosage: UNK
     Route: 065
     Dates: start: 20100827, end: 20110207
  7. ACYCLOVIR [Concomitant]
     Dosage: UNK
     Route: 065
     Dates: start: 20100927, end: 20101002
  8. PREDNISOLONE [Concomitant]
     Indication: PROPHYLAXIS AGAINST GRAFT VERSUS HOST DISEASE
     Dosage: UNK
     Route: 065
     Dates: start: 20101001, end: 20101010
  9. MEROPENEM [Concomitant]
     Indication: INFECTION PROPHYLAXIS
     Dosage: UNK
     Route: 065
     Dates: start: 20100916, end: 20100930
  10. DEFERASIROX [Concomitant]
     Indication: PROPHYLAXIS
     Dosage: UNK
     Route: 065
     Dates: start: 20101201, end: 20110215
  11. FOSCARNET SODIUM [Concomitant]
     Indication: INFECTION PROPHYLAXIS
     Dosage: UNK
     Route: 065
     Dates: start: 20110208, end: 20110211
  12. RITUXIMAB [Concomitant]
     Indication: MYELODYSPLASTIC SYNDROME
     Dosage: UNK
     Dates: start: 20110217, end: 20110217
  13. THYMOGLOBULIN [Suspect]
     Indication: BONE MARROW CONDITIONING REGIMEN
     Dosage: 190 MG, QD
     Route: 042
     Dates: start: 20100827, end: 20100827
  14. FLUDARABINE PHOSPHATE [Concomitant]
     Indication: BONE MARROW CONDITIONING REGIMEN
     Dosage: UNK
     Route: 065
     Dates: start: 20100823, end: 20100828
  15. ITRACONAZOLE [Concomitant]
     Indication: INFECTION PROPHYLAXIS
     Dosage: UNK
     Dates: start: 20100825, end: 20101005
  16. MELPHALAN HYDROCHLORIDE [Concomitant]
     Indication: MYELODYSPLASTIC SYNDROME
     Dosage: UNK
     Dates: start: 20100827, end: 20100828
  17. TACROLIMUS [Concomitant]
     Indication: MYELODYSPLASTIC SYNDROME
     Dosage: UNK
     Route: 065
     Dates: start: 20100827, end: 20110213
  18. ACYCLOVIR [Concomitant]
     Indication: INFECTION PROPHYLAXIS
     Dosage: UNK
     Route: 065
     Dates: start: 20100704, end: 20100927
  19. PIPERACILLIN SODIUM W [Concomitant]
     Indication: INFECTION PROPHYLAXIS
     Dosage: UNK
     Route: 065
     Dates: start: 20110118, end: 20110219

REACTIONS (6)
  - BRONCHOPULMONARY ASPERGILLOSIS [None]
  - APLASIA PURE RED CELL [None]
  - ACUTE GRAFT VERSUS HOST DISEASE IN SKIN [None]
  - RENAL IMPAIRMENT [None]
  - FEBRILE NEUTROPENIA [None]
  - CYTOMEGALOVIRUS TEST POSITIVE [None]
